FAERS Safety Report 13565687 (Version 1)
Quarter: 2017Q2

REPORT INFORMATION
  Report Type: Spontaneous
  Country: ES (occurrence: ES)
  Receive Date: 20170519
  Receipt Date: 20170519
  Transmission Date: 20170830
  Serious: Yes (Death)
  Sender: FDA-Public Use
  Company Number: ES-B.I. PHARMACEUTICALS,INC./RIDGEFIELD-2017-BI-028408

PATIENT

DRUGS (2)
  1. AFATINIB [Suspect]
     Active Substance: AFATINIB
     Indication: LUNG NEOPLASM
     Route: 065
     Dates: start: 20161020, end: 20161025
  2. AFATINIB [Suspect]
     Active Substance: AFATINIB
     Indication: RESPIRATORY FAILURE

REACTIONS (1)
  - Malignant neoplasm progression [Fatal]
